FAERS Safety Report 21947102 (Version 2)
Quarter: 2024Q4

REPORT INFORMATION
  Report Type: Report from Study
  Country: BR (occurrence: BR)
  Receive Date: 20230202
  Receipt Date: 20241219
  Transmission Date: 20250115
  Serious: Yes (Other)
  Sender: BAYER HEALTHCARE PHARMACEUTICALS INC.
  Company Number: BR-BAYER-2023A010884

PATIENT
  Age: 71 Year
  Sex: Female

DRUGS (7)
  1. NEXAVAR [Suspect]
     Active Substance: SORAFENIB
     Indication: Hepatocellular carcinoma
     Dosage: 4 DF, QD
     Dates: start: 202211
  2. NEXAVAR [Suspect]
     Active Substance: SORAFENIB
     Indication: Hepatocellular carcinoma
     Dosage: 400 MG, BID
     Dates: end: 202406
  3. LOSARTAN [Concomitant]
     Active Substance: LOSARTAN
     Indication: Hypertension
     Dosage: 50 MG, QD
  4. LOSARTAN [Concomitant]
     Active Substance: LOSARTAN
     Indication: Hypertension
     Dosage: 50 MG, QD
     Dates: start: 2024
  5. LOPERAMIDE [Concomitant]
     Active Substance: LOPERAMIDE
     Indication: Diarrhoea
     Dosage: IF EXPERIENCE MORE THAN 3 DIARRHEA EPISODES PER DAY, CAN TAKE UP TO 8 DF QD
     Dates: start: 202211
  6. CARVEDILOL [Concomitant]
     Active Substance: CARVEDILOL
     Indication: Hypertension
     Dosage: 1 TABLET A DAY
     Dates: start: 2024
  7. DEXILANT [Concomitant]
     Active Substance: DEXLANSOPRAZOLE
     Indication: Gastrointestinal disorder
     Dosage: 1 TABLET IN THE MORNING ON AN EMPTY STOMACH
     Dates: start: 202406

REACTIONS (14)
  - Dysentery [Recovering/Resolving]
  - Blood pressure increased [Recovering/Resolving]
  - Abdominal pain [Recovering/Resolving]
  - Chills [Recovering/Resolving]
  - Weight decreased [Unknown]
  - Asthenia [Unknown]
  - Haemoptysis [None]
  - Malaise [Unknown]
  - Pain in extremity [Recovering/Resolving]
  - Pain [Unknown]
  - Catarrh [Unknown]
  - Gait disturbance [Unknown]
  - Therapeutic product ineffective [Unknown]
  - Intra-abdominal fluid collection [Unknown]

NARRATIVE: CASE EVENT DATE: 20221101
